FAERS Safety Report 13412706 (Version 1)
Quarter: 2017Q2

REPORT INFORMATION
  Report Type: Spontaneous
  Country: US (occurrence: US)
  Receive Date: 20170406
  Receipt Date: 20170406
  Transmission Date: 20170830
  Serious: Yes (Life-Threatening, Other)
  Sender: FDA-Public Use
  Company Number: None

PATIENT
  Age: 29 Year
  Sex: Female
  Weight: 48.15 kg

DRUGS (2)
  1. JUNEL FE 1.5/30 [Suspect]
     Active Substance: ETHINYL ESTRADIOL\NORETHINDRONE ACETATE
     Indication: CONTRACEPTION
     Dosage: ?          QUANTITY:1 TABLET(S);?
     Route: 048
     Dates: start: 20170328, end: 20170405
  2. STEROIDS [Concomitant]
     Active Substance: UNSPECIFIED INGREDIENT

REACTIONS (9)
  - Loss of personal independence in daily activities [None]
  - Abdominal pain upper [None]
  - Back pain [None]
  - Dyspnoea [None]
  - Insomnia [None]
  - Pneumonitis [None]
  - Economic problem [None]
  - Impaired work ability [None]
  - Chest pain [None]

NARRATIVE: CASE EVENT DATE: 20170330
